FAERS Safety Report 14140505 (Version 9)
Quarter: 2022Q4

REPORT INFORMATION
  Report Type: Spontaneous
  Country: US (occurrence: US)
  Receive Date: 20171030
  Receipt Date: 20221219
  Transmission Date: 20230112
  Serious: Yes (Other)
  Sender: FDA-Public Use
  Company Number: US-PFIZER INC-2017461544

PATIENT
  Age: 71 Year
  Sex: Female

DRUGS (1)
  1. PREMARIN [Suspect]
     Active Substance: ESTROGENS, CONJUGATED
     Indication: Lichen sclerosus
     Dosage: UNK, 2X/WEEK
     Route: 067

REACTIONS (3)
  - Marfan^s syndrome [Unknown]
  - Vulvovaginal dryness [Unknown]
  - Off label use [Unknown]
